FAERS Safety Report 9321354 (Version 1)
Quarter: 2013Q2

REPORT INFORMATION
  Report Type: Spontaneous
  Country: DE (occurrence: None)
  Receive Date: 20130528
  Receipt Date: 20130528
  Transmission Date: 20140414
  Serious: Yes (Other)
  Sender: FDA-Public Use
  Company Number: GER/GER/13/0029554

PATIENT
  Age: 87 Year
  Sex: Male

DRUGS (5)
  1. SIMVABETA [Suspect]
     Indication: CEREBROVASCULAR ACCIDENT
     Dosage: 1 IN 1 D
     Route: 048
  2. LODOTRA (PREDNISONE) [Concomitant]
  3. LISINOPRIL (LISINOPRIL) [Concomitant]
  4. THYROXINE (LEVOTHYROXINE SODIUM) [Concomitant]
  5. AGGRENOX [Suspect]

REACTIONS (3)
  - Amnesia [None]
  - Sleep disorder [None]
  - Thinking abnormal [None]
